FAERS Safety Report 9733584 (Version 1)
Quarter: 2013Q4

REPORT INFORMATION
  Report Type: Spontaneous
  Country: US (occurrence: US)
  Receive Date: 20131205
  Receipt Date: 20131205
  Transmission Date: 20140711
  Serious: Yes (Disabling)
  Sender: FDA-Public Use
  Company Number: US-GLAXOSMITHKLINE-A1052177A

PATIENT
  Age: 50 Year
  Sex: Female

DRUGS (1)
  1. LOVAZA [Suspect]
     Indication: CARDIOVASCULAR DISORDER
     Dosage: 1G UNKNOWN
     Route: 065
     Dates: start: 201311

REACTIONS (2)
  - Cerebrovascular accident [Unknown]
  - Coronary arterial stent insertion [Unknown]
